FAERS Safety Report 9089384 (Version 2)
Quarter: 2013Q1

REPORT INFORMATION
  Report Type: Spontaneous
  Country: US (occurrence: US)
  Receive Date: 20130201
  Receipt Date: 20130227
  Transmission Date: 20140127
  Serious: No
  Sender: FDA-Public Use
  Company Number: US-B.I. PHARMACEUTICALS,INC./RIDGEFIELD-2013-BI-02525BP

PATIENT
  Age: 66 None
  Sex: Female

DRUGS (16)
  1. COMBIVENT [Suspect]
     Indication: CHRONIC OBSTRUCTIVE PULMONARY DISEASE
     Route: 055
     Dates: start: 1993, end: 20130124
  2. COMBIVENT [Suspect]
     Indication: CHRONIC OBSTRUCTIVE PULMONARY DISEASE
     Route: 055
     Dates: start: 201301
  3. ALBUTEROL [Concomitant]
     Route: 055
  4. QVAR [Concomitant]
     Dosage: 4 PUF
     Route: 055
  5. THEOPHYLLINE [Concomitant]
     Dosage: 600 MG
     Route: 048
  6. CARVEDILOL [Concomitant]
     Dosage: 12.5 MG
     Route: 048
  7. SIMVASTATIN [Concomitant]
     Indication: BLOOD CHOLESTEROL INCREASED
     Dosage: 80 MG
     Route: 048
  8. GABAPENTIN [Concomitant]
     Indication: MUSCLE SPASMS
     Dosage: 200 MG
     Route: 048
  9. FUROSEMIDE [Concomitant]
     Dosage: 40 MG
     Route: 048
  10. LANSOPRAZOLE [Concomitant]
     Indication: GASTROOESOPHAGEAL REFLUX DISEASE
     Dosage: 30 MG
     Route: 048
  11. PREDNISONE [Concomitant]
     Indication: GASTROOESOPHAGEAL REFLUX DISEASE
     Dosage: 20 MG
     Route: 048
  12. ASPIRIN [Concomitant]
     Dosage: 325 MG
     Route: 048
  13. XANAX [Concomitant]
     Indication: ANXIETY
     Route: 048
  14. NITROBID [Concomitant]
     Route: 048
  15. VITAMIN D [Concomitant]
     Dosage: 10000 U
     Route: 048
  16. CALCIUM [Concomitant]
     Dosage: 600 MG
     Route: 048

REACTIONS (6)
  - Dyspnoea [Not Recovered/Not Resolved]
  - Insomnia [Not Recovered/Not Resolved]
  - Nervousness [Not Recovered/Not Resolved]
  - Choking [Not Recovered/Not Resolved]
  - Haematoma [Not Recovered/Not Resolved]
  - Contusion [Not Recovered/Not Resolved]
